FAERS Safety Report 23297501 (Version 2)
Quarter: 2023Q4

REPORT INFORMATION
  Report Type: Spontaneous
  Country: US (occurrence: US)
  Receive Date: 20231214
  Receipt Date: 20231226
  Transmission Date: 20240110
  Serious: No
  Sender: FDA-Public Use
  Company Number: US-AMGEN-USASP2023222693

PATIENT
  Sex: Female

DRUGS (2)
  1. PROCRIT [Suspect]
     Active Substance: ERYTHROPOIETIN
     Indication: Cardiac disorder
     Dosage: UNK UNK, QWK
     Route: 065
  2. PROCRIT [Suspect]
     Active Substance: ERYTHROPOIETIN
     Indication: Off label use

REACTIONS (5)
  - Malaise [Unknown]
  - Neck pain [Unknown]
  - Product dose omission issue [Unknown]
  - Off label use [Unknown]
  - Product storage error [Unknown]
